FAERS Safety Report 10310522 (Version 1)
Quarter: 2014Q3

REPORT INFORMATION
  Report Type: Spontaneous
  Country: US (occurrence: None)
  Receive Date: 20140715
  Receipt Date: 20140715
  Transmission Date: 20150326
  Serious: Yes (Disabling, Other)
  Sender: FDA-Public Use
  Company Number: DEP_02187_2014

PATIENT
  Age: 81 Year
  Sex: Female

DRUGS (3)
  1. GRALISE [Suspect]
     Active Substance: GABAPENTIN
     Indication: PAIN
     Dosage: SAMPLE PACKS
     Route: 048
     Dates: start: 20140626, end: 20140629
  2. GRALISE [Suspect]
     Active Substance: GABAPENTIN
     Indication: NEUROPATHY PERIPHERAL
     Dosage: SAMPLE PACKS
     Route: 048
     Dates: start: 20140626, end: 20140629
  3. GRALISE [Suspect]
     Active Substance: GABAPENTIN
     Indication: OFF LABEL USE
     Dosage: SAMPLE PACKS
     Route: 048
     Dates: start: 20140626, end: 20140629

REACTIONS (4)
  - Somnolence [None]
  - Feeling abnormal [None]
  - Depression [None]
  - Dyspnoea [None]

NARRATIVE: CASE EVENT DATE: 20140705
